FAERS Safety Report 7055479-6 (Version None)
Quarter: 2010Q4

REPORT INFORMATION
  Report Type: 
  Country: None (occurrence: None)
  Receive Date: 20101021
  Receipt Date: 20101015
  Transmission Date: 20110411
  Serious: Yes (Disabling, Other)
  Sender: FDA-Public Use
  Company Number: US-SANOFI-AVENTIS-2010SA063719

PATIENT
  Age: 49 Year
  Sex: Female

DRUGS (2)
  1. AMBIEN CR [Suspect]
     Route: 048
     Dates: end: 20100614
  2. FLUOXETINE [Concomitant]

REACTIONS (5)
  - ARTHRALGIA [None]
  - FALL [None]
  - POST-TRAUMATIC STRESS DISORDER [None]
  - SOMNAMBULISM [None]
  - WRIST FRACTURE [None]
